FAERS Safety Report 6138501-0 (Version None)
Quarter: 2009Q1

REPORT INFORMATION
  Report Type: 
  Country: None (occurrence: None)
  Receive Date: 20090327
  Receipt Date: 20090316
  Transmission Date: 20090719
  Serious: Yes (Death)
  Sender: FDA-Public Use
  Company Number: 1000005308

PATIENT
  Age: 42 Year
  Sex: Male

DRUGS (6)
  1. ESCITALOPRAM [Suspect]
  2. ZYPREXA [Suspect]
     Dosage: 20 MG (20 MG, 1 IN 1 D)
  3. ESZOPICLONE [Suspect]
  4. QUETIAPINE [Suspect]
  5. HYDROXYZINE [Suspect]
  6. VALPROATE SODIUM [Suspect]

REACTIONS (2)
  - ALCOHOL USE [None]
  - DRUG TOXICITY [None]
